FAERS Safety Report 9015280 (Version 1)
Quarter: 2013Q1

REPORT INFORMATION
  Report Type: Spontaneous
  Country: US (occurrence: US)
  Receive Date: 20130116
  Receipt Date: 20130116
  Transmission Date: 20140127
  Serious: Yes (Other)
  Sender: FDA-Public Use
  Company Number: US-ELI_LILLY_AND_COMPANY-US201301002200

PATIENT
  Age: 54 Year
  Sex: Female

DRUGS (4)
  1. CYMBALTA [Suspect]
     Indication: DEPRESSION
     Dosage: 60 MG, QD
     Dates: start: 2006, end: 201203
  2. SIMVASTATIN [Concomitant]
  3. PERCOCET [Concomitant]
     Indication: PAIN
  4. OXYCONTIN [Concomitant]
     Indication: PAIN

REACTIONS (19)
  - Wound [Recovering/Resolving]
  - Acrochordon [Recovering/Resolving]
  - Rash pruritic [Recovering/Resolving]
  - Skin burning sensation [Recovering/Resolving]
  - Skin discolouration [Recovering/Resolving]
  - Headache [Unknown]
  - Eye pain [Recovering/Resolving]
  - Sensation of pressure [Recovering/Resolving]
  - Vision blurred [Unknown]
  - Asthenia [Unknown]
  - Fatigue [Unknown]
  - Myalgia [Recovering/Resolving]
  - Skin reaction [Recovering/Resolving]
  - Alopecia [Unknown]
  - Hyperhidrosis [Unknown]
  - Blood pressure increased [Recovered/Resolved]
  - Blood cholesterol increased [Recovered/Resolved]
  - Oedema [Recovered/Resolved]
  - Drug withdrawal syndrome [Unknown]
